FAERS Safety Report 22649793 (Version 1)
Quarter: 2023Q2

REPORT INFORMATION
  Report Type: Spontaneous
  Country: CN (occurrence: CN)
  Receive Date: 20230628
  Receipt Date: 20230628
  Transmission Date: 20230721
  Serious: Yes (Hospitalization)
  Sender: FDA-Public Use
  Company Number: CN-GLAXOSMITHKLINE-CN2023APC086501

PATIENT

DRUGS (1)
  1. LAMOTRIGINE [Suspect]
     Active Substance: LAMOTRIGINE
     Indication: Anxiety
     Dosage: 50 MG, QD
     Route: 048
     Dates: start: 20230518, end: 20230609

REACTIONS (7)
  - Rash [Recovering/Resolving]
  - Pyrexia [Recovering/Resolving]
  - Splenomegaly [Recovering/Resolving]
  - Lymphadenopathy [Recovering/Resolving]
  - Hepatic enzyme increased [Recovering/Resolving]
  - Hypersensitivity [Recovering/Resolving]
  - Product use in unapproved indication [Unknown]

NARRATIVE: CASE EVENT DATE: 20230518
